FAERS Safety Report 10410821 (Version 2)
Quarter: 2014Q3

REPORT INFORMATION
  Report Type: Spontaneous
  Country: US (occurrence: US)
  Receive Date: 20140826
  Receipt Date: 20140826
  Transmission Date: 20150326
  Serious: No
  Sender: FDA-Public Use
  Company Number: US-BRISTOL-MYERS SQUIBB COMPANY-19231521

PATIENT
  Age: 35 Year
  Sex: Female
  Weight: 59.86 kg

DRUGS (3)
  1. KENALOG [Suspect]
     Active Substance: TRIAMCINOLONE ACETONIDE
     Indication: UPPER RESPIRATORY TRACT INFECTION
     Dosage: 1 INJECTION
     Route: 030
     Dates: start: 20130801
  2. KENALOG [Suspect]
     Active Substance: TRIAMCINOLONE ACETONIDE
     Indication: OROPHARYNGEAL PAIN
     Dosage: 1 INJECTION
     Route: 030
     Dates: start: 20130801
  3. KENALOG [Suspect]
     Active Substance: TRIAMCINOLONE ACETONIDE
     Indication: PHARYNGITIS
     Dosage: 1 INJECTION
     Route: 030
     Dates: start: 20130801

REACTIONS (2)
  - Injection site scar [Unknown]
  - Medication error [Unknown]

NARRATIVE: CASE EVENT DATE: 20130801
